FAERS Safety Report 17462771 (Version 1)
Quarter: 2020Q1

REPORT INFORMATION
  Report Type: Spontaneous
  Country: US (occurrence: US)
  Receive Date: 20200213
  Receipt Date: 20200213
  Transmission Date: 20200409
  Serious: No
  Sender: FDA-Public Use
  Company Number: None

PATIENT
  Age: 89 Year
  Sex: Male
  Weight: 81 kg

DRUGS (1)
  1. PRIMIDONE (PRIMIDONE 50MG TAB) [Suspect]
     Active Substance: PRIMIDONE
     Indication: TREMOR
     Route: 048
     Dates: start: 20191210, end: 20200108

REACTIONS (3)
  - Confusional state [None]
  - Hallucination [None]
  - Dizziness [None]

NARRATIVE: CASE EVENT DATE: 20200108
